FAERS Safety Report 25956139 (Version 2)
Quarter: 2025Q4

REPORT INFORMATION
  Report Type: Spontaneous
  Country: EU (occurrence: EU)
  Receive Date: 20251024
  Receipt Date: 20251028
  Transmission Date: 20260118
  Serious: Yes (Other)
  Sender: ROCHE
  Company Number: EU-ROCHE-10000414304

PATIENT
  Age: 44 Year
  Sex: Female
  Weight: 89 kg

DRUGS (20)
  1. CELLCEPT [Suspect]
     Active Substance: MYCOPHENOLATE MOFETIL
     Indication: Sjogren^s syndrome
     Route: 048
     Dates: start: 20250715, end: 20251009
  2. CELLCEPT [Suspect]
     Active Substance: MYCOPHENOLATE MOFETIL
     Indication: Autoimmune hepatitis
  3. RIFAMPIN [Suspect]
     Active Substance: RIFAMPIN
     Indication: Latent tuberculosis
     Route: 048
     Dates: start: 20250919
  4. IVERMECTIN [Concomitant]
     Active Substance: IVERMECTIN
     Indication: Strongyloidiasis
     Dosage: TABLETS OF 3 MG ON 28/09 THEN EVERY DAY SINCE 02/10\?5 TABLETS OF 3 MG PER DAY
     Route: 048
     Dates: start: 20250928
  5. IVERMECTIN [Concomitant]
     Active Substance: IVERMECTIN
     Dosage: TABLETS OF 3 MG ON 28/09 THEN EVERY DAY SINCE 02/10\?5 TABLETS OF 3 MG PER DAY
     Route: 048
     Dates: start: 20251002, end: 20251020
  6. ENTECAVIR [Concomitant]
     Active Substance: ENTECAVIR
     Indication: Hepatitis B
     Dosage: SINCE 02/10
     Route: 048
     Dates: start: 20251022
  7. ALBENDAZOLE [Concomitant]
     Active Substance: ALBENDAZOLE
     Dosage: OR 3 DAYS STARTING ON 28/09
  8. PRAZIQUANTEL [Concomitant]
     Active Substance: PRAZIQUANTEL
     Dosage: ON 28/09
  9. LIDOCAINE [Concomitant]
     Active Substance: LIDOCAINE
     Dosage: 700
  10. RIFAXIMIN [Concomitant]
     Active Substance: RIFAXIMIN
     Dosage: 550
  11. bicarbonate mouth wash [Concomitant]
     Route: 048
  12. VIMPAT [Concomitant]
     Active Substance: LACOSAMIDE
     Dosage: MORNING AND EVENING
  13. LANSOPRAZOLE [Concomitant]
     Active Substance: LANSOPRAZOLE
  14. DUPHALAC [Concomitant]
     Active Substance: LACTULOSE
     Dosage: 2 SACHETS?MORNING/NOON/EVENING
  15. LEVOTHYROXINE [Concomitant]
     Active Substance: LEVOTHYROXINE
  16. GABAPENTIN [Concomitant]
     Active Substance: GABAPENTIN
     Dosage: MORNING AND EVENING
  17. ALDACTONE [Concomitant]
     Active Substance: SPIRONOLACTONE
  18. FUROSEMIDE [Concomitant]
     Active Substance: FUROSEMIDE
  19. ACUPAN [Concomitant]
     Active Substance: NEFOPAM HYDROCHLORIDE
  20. FOLIC ACID [Concomitant]
     Active Substance: FOLIC ACID

REACTIONS (3)
  - Agranulocytosis [Recovering/Resolving]
  - Neutropenia [Unknown]
  - Off label use [Unknown]

NARRATIVE: CASE EVENT DATE: 20251003
